FAERS Safety Report 8818852 (Version 2)
Quarter: 2012Q4

REPORT INFORMATION
  Report Type: 
  Country: JP (occurrence: JP)
  Receive Date: 20121001
  Receipt Date: 20121003
  Transmission Date: 20130627
  Serious: Yes (Death, Hospitalization)
  Sender: FDA-Public Use
  Company Number: JP-COVIDIEN/TYCO HEALTHCARE/MALLINCKRODT-T201203489

PATIENT
  Age: 43 Year
  Sex: Female
  Weight: 57 kg

DRUGS (32)
  1. METHADONE [Suspect]
     Indication: CANCER PAIN
     Dosage: 75mg/day t.i.d.
     Route: 048
     Dates: start: 20120901, end: 20120916
  2. METHADONE [Suspect]
     Dosage: 60mg/day t.i.d.
     Route: 048
     Dates: start: 20110511, end: 20110601
  3. METHADONE [Suspect]
     Dosage: 75mg/day t.i.d.
     Route: 048
     Dates: start: 20110602, end: 20110802
  4. METHADONE [Suspect]
     Dosage: 60mg/day t.i.d.
     Route: 048
     Dates: start: 20110803, end: 20111004
  5. METHADONE [Suspect]
     Dosage: 75mg/day t.i.d.
     Route: 048
     Dates: start: 20111005, end: 20120507
  6. METHADONE [Suspect]
     Dosage: 60mg/day t.i.d.
     Route: 048
     Dates: start: 20120508, end: 20120831
  7. METHADONE [Suspect]
     Dosage: 30mg/day t.i.d.
     Dates: start: 20110202, end: 20110329
  8. METHADONE [Suspect]
     Dosage: 45mg/day t.i.d.
     Dates: start: 20110330, end: 20110510
  9. AVASTIN                            /01555201/ [Suspect]
     Indication: CHEMOTHERAPY
     Dosage: 570mg (once/2 weeks),
     Dates: start: 20120904, end: 20120904
  10. PACLITAXEL [Suspect]
     Indication: CHEMOTHERAPY
     Dosage: 123 mg /week
     Dates: start: 20120904, end: 20120904
  11. PACLITAXEL [Suspect]
     Dosage: 123 mg/week
     Dates: start: 20120911, end: 20120911
  12. OXINORM                            /00045603/ [Concomitant]
     Indication: PAIN
     Dosage: 10 mg, prn
     Dates: start: 20111004, end: 20120916
  13. KETOPROFEN [Concomitant]
     Indication: CANCER PAIN
     Dosage: 20-40 mg, prn
     Dates: end: 20120919
  14. KAIBEEL C [Concomitant]
     Indication: CONSTIPATION
     Dosage: 3 tab, prn
     Dates: start: 20110204, end: 20120919
  15. MAGLAX [Concomitant]
     Dosage: 1500 mg, qd
     Dates: start: 20110904, end: 20120915
  16. MYSLEE [Concomitant]
     Indication: INSOMNIA
     Dosage: 10 mg, prn
     Dates: end: 20120915
  17. ZOMETA [Concomitant]
     Dosage: 4 mg, once/6 weeks
     Route: 042
     Dates: end: 20120827
  18. SALINE                             /00075401/ [Concomitant]
     Dosage: 100 ml, once/6 weeks
     Dates: end: 20120827
  19. SALINE                             /00075401/ [Concomitant]
     Dosage: 50mL/week
  20. SALINE                             /00075401/ [Concomitant]
     Dosage: 100mL (once/2 weeks),
  21. SALINE                             /00075401/ [Concomitant]
     Dosage: 40mL/week
  22. HEPARIN NA LOCK [Concomitant]
     Indication: ANTICOAGULANT THERAPY
     Dosage: 10 units/time, prn
     Dates: start: 20110614, end: 20120915
  23. XYLOCAINE                          /00033401/ [Concomitant]
     Indication: STOMATITIS
     Dosage: UNK
     Dates: start: 20120906, end: 20120915
  24. HACHIAZULE                         /00523101/ [Concomitant]
     Indication: STOMATITIS
     Dosage: UNK
     Dates: start: 20120906, end: 20120915
  25. REBAMIPIDE [Concomitant]
     Dosage: 750mg/day t.i.d
     Dates: start: 20120827, end: 20120915
  26. NAUZELIN [Concomitant]
     Dosage: 30mg/day t.i.d
     Dates: start: 20120904, end: 20120915
  27. VENA                               /00000402/ [Concomitant]
     Dosage: 50mg/week
     Dates: start: 20120904
  28. DEXART [Concomitant]
     Dosage: 6.6mg/week
     Dates: start: 20120904, end: 20120904
  29. DEXART [Concomitant]
     Dosage: 6.6mg/week
     Dates: start: 20120911, end: 20120911
  30. GASTER [Concomitant]
     Dosage: 20mg/week
     Dates: start: 20120904, end: 20120904
  31. GASTER [Concomitant]
     Dosage: 20mg/week
     Dates: start: 20120911, end: 20120911
  32. OTSUKA GLUCOSE INJECTION [Concomitant]
     Dosage: 250mL /week
     Dates: start: 20120904

REACTIONS (1)
  - Febrile neutropenia [Fatal]
